FAERS Safety Report 24703115 (Version 1)
Quarter: 2024Q4

REPORT INFORMATION
  Report Type: Spontaneous
  Country: CA (occurrence: CA)
  Receive Date: 20241205
  Receipt Date: 20241205
  Transmission Date: 20250115
  Serious: Yes (Life-Threatening, Other)
  Sender: PFIZER
  Company Number: CA-PFIZER INC-202400314283

PATIENT
  Age: 4 Year
  Sex: Female
  Weight: 17 kg

DRUGS (2)
  1. LORAZEPAM [Suspect]
     Active Substance: LORAZEPAM
     Dosage: 1.6 MG
     Route: 042
  2. LEVETIRACETAM [Concomitant]
     Active Substance: LEVETIRACETAM
     Dosage: UNK
     Route: 065

REACTIONS (4)
  - Apnoea [Recovered/Resolved]
  - Endotracheal intubation [Recovered/Resolved]
  - Hypotension [Recovered/Resolved]
  - Off label use [Unknown]
